FAERS Safety Report 5223498-8 (Version None)
Quarter: 2007Q1

REPORT INFORMATION
  Report Type: 
  Country: None (occurrence: None)
  Receive Date: 20070125
  Receipt Date: 20070111
  Transmission Date: 20070707
  Serious: Yes (Death, Hospitalization)
  Sender: FDA-Public Use
  Company Number: CERZ-11408

PATIENT
  Age: 56 Year
  Sex: Female
  Weight: 68 kg

DRUGS (1)
  1. CEREZYME [Suspect]
     Indication: GAUCHER'S DISEASE
     Dosage: 58 U/KG Q2WKS IV
     Route: 042
     Dates: start: 20010501

REACTIONS (5)
  - ANGIOPLASTY [None]
  - INFECTION [None]
  - PORTAL HYPERTENSION [None]
  - SEPSIS [None]
  - TREATMENT NONCOMPLIANCE [None]
